FAERS Safety Report 4864187-9 (Version None)
Quarter: 2005Q4

REPORT INFORMATION
  Report Type: 
  Country: None (occurrence: None)
  Receive Date: 20051219
  Receipt Date: 20051208
  Transmission Date: 20060501
  Serious: Yes (Hospitalization)
  Sender: FDA-Public Use
  Company Number: 2005167971

PATIENT
  Age: 37 Year
  Sex: Male

DRUGS (6)
  1. GLADEM (SERTRALINE) [Suspect]
     Indication: ILL-DEFINED DISORDER
     Dosage: 1000 MG (100 MG), ORAL
     Route: 048
  2. AMOXICILLIN [Suspect]
     Indication: ILL-DEFINED DISORDER
     Dosage: 500 MG, ORAL
     Route: 048
  3. IBUPROFEN [Suspect]
     Indication: ILL-DEFINED DISORDER
     Dosage: 3600 MG (600 MG), ORAL
     Route: 048
  4. DICLOFENAC SODIUM [Suspect]
     Indication: ILL-DEFINED DISORDER
     Dosage: 250 MG (50 MG), ORAL
     Route: 048
  5. DOXYCYCLINE [Suspect]
     Indication: ILL-DEFINED DISORDER
     Dosage: ORAL
     Route: 048
  6. QUILONUM  - SLOW RELEASE (LITHIUM CARBONATE) [Suspect]
     Indication: ILL-DEFINED DISORDER
     Dosage: 2700 MG (450 MG), ORAL
     Route: 048

REACTIONS (2)
  - DRY MOUTH [None]
  - SUICIDAL IDEATION [None]
